FAERS Safety Report 23056916 (Version 1)
Quarter: 2023Q4

REPORT INFORMATION
  Report Type: Spontaneous
  Country: US (occurrence: US)
  Receive Date: 20231012
  Receipt Date: 20231012
  Transmission Date: 20240110
  Serious: No
  Sender: FDA-Public Use
  Company Number: US-SA-SAC20231010000708

PATIENT
  Age: 55 Year
  Sex: Female
  Weight: 65.77 kg

DRUGS (24)
  1. DUPIXENT [Suspect]
     Active Substance: DUPILUMAB
     Indication: Asthma
     Dosage: 300 MG, QOW
     Route: 058
     Dates: start: 202308
  2. BOTOX [Concomitant]
     Active Substance: ONABOTULINUMTOXINA
  3. ALBUTEROL SULFATE [Concomitant]
     Active Substance: ALBUTEROL SULFATE
  4. CALCIUM ASCORBATE [Concomitant]
     Active Substance: CALCIUM ASCORBATE
  5. SYMBICORT [Concomitant]
     Active Substance: BUDESONIDE\FORMOTEROL FUMARATE DIHYDRATE
     Dosage: 160-4.5MCG HFA AER AD
  6. MONTELUKAST SODIUM [Concomitant]
     Active Substance: MONTELUKAST SODIUM
  7. BUSPIRONE HCL [Concomitant]
     Active Substance: BUSPIRONE HYDROCHLORIDE
  8. BIOTIN [Concomitant]
     Active Substance: BIOTIN
  9. ASPIRIN [Concomitant]
     Active Substance: ASPIRIN
  10. TIZANIDINE HYDROCHLORIDE [Concomitant]
     Active Substance: TIZANIDINE HYDROCHLORIDE
  11. NUCALA [Concomitant]
     Active Substance: MEPOLIZUMAB
  12. SPIRONOLACTONE [Concomitant]
     Active Substance: SPIRONOLACTONE
  13. DOXYCYCLINE HYCLATE [Concomitant]
     Active Substance: DOXYCYCLINE HYCLATE
  14. CYMBALTA [Concomitant]
     Active Substance: DULOXETINE HYDROCHLORIDE
  15. LEVOTHYROXINE [Concomitant]
     Active Substance: LEVOTHYROXINE
  16. TOPIRAMATE [Concomitant]
     Active Substance: TOPIRAMATE
  17. ELIQUIS [Concomitant]
     Active Substance: APIXABAN
  18. ONDANSETRON HYDROCHLORIDE [Concomitant]
     Active Substance: ONDANSETRON HYDROCHLORIDE
  19. ABILIFY [Concomitant]
     Active Substance: ARIPIPRAZOLE
  20. PANTOPRAZOLE SODIUM [Concomitant]
     Active Substance: PANTOPRAZOLE SODIUM
  21. ESCITALOPRAM OXALATE [Concomitant]
     Active Substance: ESCITALOPRAM OXALATE
  22. ALBUTEROL SULFATE [Concomitant]
     Active Substance: ALBUTEROL SULFATE
  23. MAGNESIUM [Concomitant]
     Active Substance: MAGNESIUM
  24. ACIDOPHILUS [Concomitant]
     Active Substance: LACTOBACILLUS ACIDOPHILUS

REACTIONS (2)
  - Tendonitis [Not Recovered/Not Resolved]
  - Varicose vein [Not Recovered/Not Resolved]

NARRATIVE: CASE EVENT DATE: 20230101
